FAERS Safety Report 11231565 (Version 6)
Quarter: 2015Q3

REPORT INFORMATION
  Report Type: Spontaneous
  Country: IT (occurrence: IT)
  Receive Date: 20150701
  Receipt Date: 20150731
  Transmission Date: 20151125
  Serious: Yes (Death)
  Sender: FDA-Public Use
  Company Number: IT-PFIZER INC-2015216965

PATIENT
  Age: 3 Year
  Sex: Male
  Weight: 17 kg

DRUGS (4)
  1. CEFODOX [Suspect]
     Active Substance: CEFPODOXIME PROXETIL
     Indication: PHARYNGOTONSILLITIS
  2. DICODRAL [Concomitant]
     Dosage: UNK
     Route: 048
  3. CEFODOX [Suspect]
     Active Substance: CEFPODOXIME PROXETIL
     Indication: EAR INFECTION
     Dosage: 70 MG, 2X/DAY
     Route: 048
     Dates: start: 20150325, end: 20150326
  4. CEFODOX [Suspect]
     Active Substance: CEFPODOXIME PROXETIL
     Indication: PNEUMONIA

REACTIONS (2)
  - Drug ineffective [Unknown]
  - Pneumonia [Fatal]

NARRATIVE: CASE EVENT DATE: 20150326
